FAERS Safety Report 24580506 (Version 1)
Quarter: 2024Q4

REPORT INFORMATION
  Report Type: Spontaneous
  Country: US (occurrence: None)
  Receive Date: 20241105
  Receipt Date: 20241105
  Transmission Date: 20250115
  Serious: Yes (Hospitalization)
  Sender: Public
  Company Number: None

PATIENT
  Sex: Female

DRUGS (3)
  1. DEFERIPRONE [Suspect]
     Active Substance: DEFERIPRONE
     Indication: Basal ganglion degeneration
     Dosage: 500 MG 3 TIMES A DAY ORAL?
     Route: 048
     Dates: start: 202210
  2. DEFERIPRONE [Suspect]
     Active Substance: DEFERIPRONE
     Indication: Iron metabolism disorder
  3. DEFERIPRONE [Suspect]
     Active Substance: DEFERIPRONE
     Indication: Haemochromatosis

REACTIONS (1)
  - Hospitalisation [None]
